FAERS Safety Report 9218288 (Version 2)
Quarter: 2013Q2

REPORT INFORMATION
  Report Type: Spontaneous
  Country: JP (occurrence: JP)
  Receive Date: 20130409
  Receipt Date: 20130424
  Transmission Date: 20140414
  Serious: Yes (Other)
  Sender: FDA-Public Use
  Company Number: JP-RANBAXY-2013RR-66877

PATIENT
  Age: 100 Year
  Sex: Male

DRUGS (2)
  1. RISPERIDONE [Suspect]
     Indication: DELIRIUM
     Dosage: 0.5 MG, SINGLE DOSE
     Route: 065
  2. RAMELTEON [Concomitant]
     Indication: DELIRIUM
     Dosage: 8MG AT 21:00 HOURS DAILY
     Route: 065

REACTIONS (2)
  - Sedation [Recovering/Resolving]
  - Psychomotor hyperactivity [Unknown]
